FAERS Safety Report 9371671 (Version 3)
Quarter: 2013Q3

REPORT INFORMATION
  Report Type: Spontaneous
  Country: US (occurrence: US)
  Receive Date: 20130627
  Receipt Date: 20130802
  Transmission Date: 20140515
  Serious: No
  Sender: FDA-Public Use
  Company Number: US-PFIZER INC-2013189724

PATIENT
  Age: 47 Year
  Sex: Male

DRUGS (11)
  1. SKELAXIN [Suspect]
     Dosage: UNK
  2. SIMVASTATIN [Suspect]
     Dosage: UNK
  3. CELEBREX [Suspect]
     Dosage: UNK
  4. ATENOLOL [Suspect]
     Dosage: UNK
  5. BACTRIM [Suspect]
     Dosage: UNK
  6. VICODIN [Suspect]
     Dosage: UNK
  7. ASA [Suspect]
     Dosage: UNK
  8. ADVAIR [Suspect]
     Dosage: UNK
  9. KAPIDEX [Suspect]
     Dosage: UNK
  10. VERSED [Suspect]
     Dosage: UNK
  11. HYDROCODONE [Suspect]
     Dosage: UNK

REACTIONS (2)
  - Drug hypersensitivity [Unknown]
  - Abdominal discomfort [Unknown]
